FAERS Safety Report 7235585-3 (Version None)
Quarter: 2011Q1

REPORT INFORMATION
  Report Type: 
  Country: None (occurrence: None)
  Receive Date: 20110120
  Receipt Date: 20110118
  Transmission Date: 20110831
  Serious: Yes (Death)
  Sender: FDA-Public Use
  Company Number: US-PFIZER INC-2011012816

PATIENT
  Sex: Female

DRUGS (1)
  1. TYGACIL [Suspect]

REACTIONS (1)
  - PANCREATITIS ACUTE [None]
